FAERS Safety Report 5649649-9 (Version None)
Quarter: 2008Q1

REPORT INFORMATION
  Report Type: 
  Country: None (occurrence: None)
  Receive Date: 20080304
  Receipt Date: 20080225
  Transmission Date: 20080703
  Serious: Yes (Disabling)
  Sender: FDA-Public Use
  Company Number: GB-ABBOTT-08P-167-0438231-00

PATIENT
  Sex: Female
  Weight: 96.4 kg

DRUGS (4)
  1. REDUCTIL [Suspect]
     Indication: WEIGHT CONTROL
     Route: 048
     Dates: start: 20070710, end: 20070820
  2. REDUCTIL [Suspect]
     Dates: start: 20080102
  3. QUININE SULFATE [Concomitant]
     Indication: DRUG USE FOR UNKNOWN INDICATION
     Route: 048
     Dates: start: 20000807
  4. SIMVASTATIN [Concomitant]
     Indication: DRUG USE FOR UNKNOWN INDICATION
     Route: 048
     Dates: start: 20001018

REACTIONS (3)
  - COUGH [None]
  - DRY MOUTH [None]
  - PRODUCTIVE COUGH [None]
